FAERS Safety Report 8014481-8 (Version None)
Quarter: 2011Q4

REPORT INFORMATION
  Report Type: 
  Country: None (occurrence: None)
  Receive Date: 20111229
  Receipt Date: 20111221
  Transmission Date: 20120403
  Serious: Yes (Hospitalization, Other)
  Sender: FDA-Public Use
  Company Number: CA-SHIRE-ALL1-2011-05070

PATIENT
  Sex: Male
  Weight: 28.6 kg

DRUGS (2)
  1. IDURSULFASE [Suspect]
     Indication: MUCOPOLYSACCHARIDOSIS II
     Dosage: 14.3 MG, 1X/WEEK
     Route: 041
     Dates: start: 20080813
  2. UNSPECIFIED PRE MEDICATION [Concomitant]
     Indication: PREMEDICATION
     Dosage: UNK, UNKNOWN
     Route: 065

REACTIONS (3)
  - INSOMNIA [None]
  - RESTLESSNESS [None]
  - AGITATION [None]
